FAERS Safety Report 16122857 (Version 1)
Quarter: 2019Q1

REPORT INFORMATION
  Report Type: Spontaneous
  Country: US (occurrence: US)
  Receive Date: 20190327
  Receipt Date: 20190327
  Transmission Date: 20190418
  Serious: No
  Sender: FDA-Public Use
  Company Number: US-TEVA-2019-US-1031665

PATIENT
  Age: 75 Year
  Sex: Male

DRUGS (2)
  1. BACLOFEN. [Suspect]
     Active Substance: BACLOFEN
     Route: 065
  2. MELATONIN [Suspect]
     Active Substance: MELATONIN
     Route: 065

REACTIONS (1)
  - Drug ineffective [Unknown]
